FAERS Safety Report 5005303-8 (Version None)
Quarter: 2006Q2

REPORT INFORMATION
  Report Type: 
  Country: None (occurrence: None)
  Receive Date: 20060518
  Receipt Date: 20060516
  Transmission Date: 20061013
  Serious: Yes (Hospitalization)
  Sender: FDA-Public Use
  Company Number: FR-GLAXOSMITHKLINE-B0423981A

PATIENT
  Age: 72 Year
  Sex: Female

DRUGS (6)
  1. AUGMENTIN '125' [Suspect]
     Indication: URINARY TRACT INFECTION
     Dosage: 3G PER DAY
     Route: 048
     Dates: start: 20060323, end: 20060326
  2. TEGRETOL [Suspect]
     Dosage: 200MG PER DAY
     Route: 048
     Dates: end: 20060329
  3. ZOLOFT [Suspect]
     Dosage: 100MG PER DAY
     Route: 048
     Dates: end: 20060329
  4. ASPIRIN [Concomitant]
     Route: 065
  5. TOPALGIC ( FRANCE ) [Concomitant]
     Route: 065
  6. LASILIX [Concomitant]
     Route: 065

REACTIONS (2)
  - PURPURA [None]
  - RASH ERYTHEMATOUS [None]
